FAERS Safety Report 5374446-1 (Version None)
Quarter: 2007Q2

REPORT INFORMATION
  Report Type: 
  Country: None (occurrence: None)
  Receive Date: 20070629
  Receipt Date: 20070618
  Transmission Date: 20071010
  Serious: Yes (Hospitalization)
  Sender: FDA-Public Use
  Company Number: DE-BAYER-200710432BVD

PATIENT

DRUGS (1)
  1. AVELOX [Suspect]
     Indication: UNEVALUABLE EVENT
     Route: 041

REACTIONS (2)
  - ANURIA [None]
  - RENAL FAILURE [None]
